FAERS Safety Report 13260629 (Version 3)
Quarter: 2017Q2

REPORT INFORMATION
  Report Type: Spontaneous
  Country: IT (occurrence: IT)
  Receive Date: 20170222
  Receipt Date: 20170518
  Transmission Date: 20170830
  Serious: Yes (Other)
  Sender: FDA-Public Use
  Company Number: IT-MYLANLABS-2017M1010563

PATIENT

DRUGS (2)
  1. KCL RETARD ZYMA [Concomitant]
     Active Substance: POTASSIUM CHLORIDE
     Indication: PRODUCT USED FOR UNKNOWN INDICATION
     Dosage: UNK
  2. METHOTREXATE. [Suspect]
     Active Substance: METHOTREXATE
     Indication: SELECTIVE ABORTION
     Dosage: 15 MG, UNK
     Route: 064

REACTIONS (3)
  - Product use in unapproved indication [Unknown]
  - Craniofacial dysostosis [Unknown]
  - Maternal exposure during pregnancy [Unknown]
